FAERS Safety Report 23618337 (Version 1)
Quarter: 2024Q1

REPORT INFORMATION
  Report Type: Spontaneous
  Country: US (occurrence: None)
  Receive Date: 20240311
  Receipt Date: 20240311
  Transmission Date: 20240409
  Serious: Yes (Hospitalization)
  Sender: FDA-Public Use
  Company Number: None

PATIENT
  Age: 46 Year
  Sex: Female

DRUGS (1)
  1. BRAFTOVI [Suspect]
     Active Substance: ENCORAFENIB
     Indication: Malignant melanoma
     Dosage: FREQUENCY : DAILY;?
     Route: 048

REACTIONS (8)
  - Asthenia [None]
  - Headache [None]
  - Pyrexia [None]
  - Nausea [None]
  - Vomiting [None]
  - Dizziness [None]
  - Pain [None]
  - Therapy interrupted [None]
